FAERS Safety Report 5355493-2 (Version None)
Quarter: 2007Q2

REPORT INFORMATION
  Report Type: 
  Country: None (occurrence: None)
  Receive Date: 20070612
  Receipt Date: 20070612
  Transmission Date: 20071010
  Serious: No
  Sender: FDA-Public Use
  Company Number: None

PATIENT

DRUGS (2)
  1. REGULAR INSULIN [Suspect]
     Dosage: INJECTABLE
  2. HUMALOG [Suspect]
     Dosage: INJECTABLE

REACTIONS (3)
  - AMNESIA [None]
  - INCORRECT DOSE ADMINISTERED [None]
  - MEDICATION ERROR [None]
